FAERS Safety Report 7580284 (Version 2)
Quarter: 2013Q4

REPORT INFORMATION
  Report Type: Spontaneous
  Country: US (occurrence: US)
  Receive Date: 20100910
  Receipt Date: 20131011
  Transmission Date: 20140711
  Serious: Yes (Hospitalization, Congenital Anomaly, Other)
  Sender: FDA-Public Use
  Company Number: US-PFIZER INC-2010109657

PATIENT
  Age: 3 Week
  Sex: Female
  Weight: 3 kg

DRUGS (8)
  1. ZOLOFT [Suspect]
     Indication: DEPRESSION
     Dosage: UNK
     Route: 064
     Dates: start: 200201, end: 200401
  2. ZOLOFT [Suspect]
     Dosage: 50 MG, 1X/DAY
     Route: 064
     Dates: start: 20020409
  3. ZOLOFT [Suspect]
     Dosage: 100 MG, 1X/DAY
     Route: 064
     Dates: start: 20020520
  4. PHENOBARBITAL [Concomitant]
     Indication: CONVULSION
     Dosage: 60 MG, 3X/DAY
     Route: 064
     Dates: start: 20020507
  5. SYNTHROID [Concomitant]
     Indication: HYPOTHYROIDISM
     Dosage: 150 UG, 1X/DAY
     Route: 064
     Dates: start: 20020507
  6. COLACE [Concomitant]
     Dosage: UNK
     Route: 064
     Dates: start: 20020801
  7. TYLENOL [Concomitant]
     Dosage: UNK
     Route: 064
  8. PRENATAL VITAMINS [Concomitant]
     Dosage: UNK
     Route: 064

REACTIONS (16)
  - Foetal exposure during pregnancy [Unknown]
  - Truncus arteriosus persistent [Unknown]
  - Atrial septal defect [Recovered/Resolved]
  - Congenital skin dimples [Unknown]
  - Meningitis [Unknown]
  - Osteosclerosis [Unknown]
  - Autoimmune thyroiditis [Unknown]
  - Atrioventricular septal defect [Unknown]
  - Transposition of the great vessels [Unknown]
  - Univentricular heart [Unknown]
  - Pulmonary valve stenosis [Unknown]
  - Ventricular septal defect [Recovered/Resolved]
  - Spleen malformation [Unknown]
  - Congenital scoliosis [Unknown]
  - Weight gain poor [Unknown]
  - Tooth disorder [Unknown]
